FAERS Safety Report 14123277 (Version 1)
Quarter: 2017Q4

REPORT INFORMATION
  Report Type: Spontaneous
  Country: US (occurrence: US)
  Receive Date: 20171025
  Receipt Date: 20171025
  Transmission Date: 20180321
  Serious: No
  Sender: FDA-Public Use
  Company Number: US-ASTRAZENECA-2017SF08529

PATIENT
  Sex: Female

DRUGS (1)
  1. TUDORZA PRESSAIR [Suspect]
     Active Substance: ACLIDINIUM BROMIDE
     Route: 055
     Dates: start: 201707

REACTIONS (1)
  - Product quality issue [Unknown]
